FAERS Safety Report 11588949 (Version 2)
Quarter: 2015Q4

REPORT INFORMATION
  Report Type: Report from Study
  Country: ES (occurrence: ES)
  Receive Date: 20151002
  Receipt Date: 20151027
  Transmission Date: 20160304
  Serious: Yes (Death, Hospitalization)
  Sender: FDA-Public Use
  Company Number: ES-009507513-1504ESP020694

PATIENT
  Age: 35 Year
  Sex: Male

DRUGS (1)
  1. PEMBROLIZUMAB. [Suspect]
     Active Substance: PEMBROLIZUMAB
     Indication: MALIGNANT MELANOMA
     Dosage: 2 MG/KG, EVERY 21 DAYS
     Route: 042
     Dates: start: 20150330, end: 20150806

REACTIONS (6)
  - Metastases to central nervous system [Unknown]
  - Abscess [Unknown]
  - Axillary mass [Unknown]
  - Hypothyroidism [Not Recovered/Not Resolved]
  - Therapy responder [Unknown]
  - Death [Fatal]

NARRATIVE: CASE EVENT DATE: 20150420
